FAERS Safety Report 20368209 (Version 3)
Quarter: 2022Q4

REPORT INFORMATION
  Report Type: Report from Study
  Country: JP (occurrence: JP)
  Receive Date: 20220124
  Receipt Date: 20221002
  Transmission Date: 20230113
  Serious: Yes (Hospitalization)
  Sender: FDA-Public Use
  Company Number: JP-MTPC-MTPC2021-0027362AA

PATIENT
  Age: 67 Year
  Sex: Male

DRUGS (10)
  1. CANAGLIFLOZIN [Suspect]
     Active Substance: CANAGLIFLOZIN
     Indication: Type 2 diabetes mellitus
     Dosage: 100 MILLIGRAM, QD
     Route: 048
     Dates: start: 20201030, end: 20211020
  2. GLIMEPIRIDE [Suspect]
     Active Substance: GLIMEPIRIDE
     Indication: Diabetes mellitus
     Dosage: 1.5 MILLIGRAM, QD
     Route: 048
     Dates: start: 20090828
  3. PIOGLITAZONE [Suspect]
     Active Substance: PIOGLITAZONE
     Indication: Diabetes mellitus
     Dosage: 30 MILLIGRAM, QD
     Route: 048
     Dates: start: 20100604
  4. METGLUCO [Suspect]
     Active Substance: METFORMIN HYDROCHLORIDE
     Indication: Diabetes mellitus
     Dosage: 1000 MILLIGRAM, QD
     Route: 048
     Dates: start: 20160122
  5. OMARIGLIPTIN [Suspect]
     Active Substance: OMARIGLIPTIN
     Indication: Diabetes mellitus
     Dosage: 25 MILLIGRAM, 1/WEEK
     Route: 048
     Dates: start: 20161216
  6. TAMSULOSIN HYDROCHLORIDE [Suspect]
     Active Substance: TAMSULOSIN HYDROCHLORIDE
     Indication: Benign prostatic hyperplasia
     Dosage: 0.1 MILLIGRAM, QD
     Route: 048
     Dates: start: 20180223
  7. HERBALS [Suspect]
     Active Substance: HERBALS
     Indication: Benign prostatic hyperplasia
     Dosage: 1 DOSAGE FORM, QD
     Route: 048
     Dates: start: 20181221
  8. HERBAL NOS [Concomitant]
     Active Substance: HERBALS
     Indication: Chronic gastritis
     Dosage: 2.5 GRAM, TID
     Route: 048
     Dates: start: 20210903
  9. FAMOTIDINE [Concomitant]
     Active Substance: FAMOTIDINE
     Indication: Chronic gastritis
     Dosage: 20 MILLIGRAM, BID
     Route: 048
     Dates: start: 20210917, end: 20211008
  10. VONOPRAZAN FUMARATE [Concomitant]
     Active Substance: VONOPRAZAN FUMARATE
     Indication: Chronic gastritis
     Dosage: 20 MILLIGRAM, QD
     Route: 048
     Dates: start: 20211009

REACTIONS (3)
  - Gastric cancer [Not Recovered/Not Resolved]
  - Tinea pedis [Recovering/Resolving]
  - Chronic gastritis [Not Recovered/Not Resolved]

NARRATIVE: CASE EVENT DATE: 20201015
